FAERS Safety Report 20079307 (Version 1)
Quarter: 2021Q4

REPORT INFORMATION
  Report Type: Other
  Country: FR (occurrence: FR)
  Receive Date: 20211117
  Receipt Date: 20211117
  Transmission Date: 20220303
  Serious: Yes (Hospitalization)
  Sender: FDA-Public Use
  Company Number: None

PATIENT

DRUGS (4)
  1. SERTRALINE [Suspect]
     Active Substance: SERTRALINE HYDROCHLORIDE
     Indication: Toxicity to various agents
     Dosage: UNK UNK, QD
     Route: 048
     Dates: start: 20211004, end: 20211004
  2. TERALITHE [Suspect]
     Active Substance: LITHIUM CARBONATE
     Indication: Toxicity to various agents
     Dosage: 10 DOSAGE FORM, QD
     Route: 048
     Dates: start: 20211004, end: 20211004
  3. LAMICTAL [Suspect]
     Active Substance: LAMOTRIGINE
     Indication: Toxicity to various agents
     Dosage: 10 DOSAGE FORM, QD
     Route: 048
     Dates: start: 20211004, end: 20211004
  4. TRANXENE [Suspect]
     Active Substance: CLORAZEPATE DIPOTASSIUM
     Indication: Toxicity to various agents
     Dosage: 20 DOSAGE FORM, QD
     Route: 048
     Dates: start: 20211004, end: 20211004

REACTIONS (2)
  - Cerebellar syndrome [Recovering/Resolving]
  - Diarrhoea [Recovering/Resolving]

NARRATIVE: CASE EVENT DATE: 20211004
